FAERS Safety Report 4625579-6 (Version None)
Quarter: 2005Q1

REPORT INFORMATION
  Report Type: 
  Country: None (occurrence: None)
  Receive Date: 20050330
  Receipt Date: 20050311
  Transmission Date: 20050727
  Serious: Yes (Death, Other)
  Sender: FDA-Public Use
  Company Number: DE_050315471

PATIENT
  Age: 41 Year
  Sex: Female

DRUGS (1)
  1. XIGRIS [Suspect]
     Indication: SEPSIS
     Dosage: 24 UG/KG/HR
     Dates: start: 20050306, end: 20050309

REACTIONS (14)
  - ATELECTASIS [None]
  - CONDITION AGGRAVATED [None]
  - ENDOCARDITIS [None]
  - HAEMATOMA [None]
  - HAEMOTHORAX [None]
  - LEFT VENTRICULAR FAILURE [None]
  - MULTI-ORGAN FAILURE [None]
  - PETECHIAE [None]
  - PHLEBOTHROMBOSIS [None]
  - PLEURAL EFFUSION [None]
  - POST PROCEDURAL HAEMORRHAGE [None]
  - PULMONARY THROMBOSIS [None]
  - RIGHT VENTRICULAR FAILURE [None]
  - SOFT TISSUE HAEMORRHAGE [None]
